FAERS Safety Report 4873569-0 (Version None)
Quarter: 2006Q1

REPORT INFORMATION
  Report Type: 
  Country: None (occurrence: None)
  Receive Date: 20060105
  Receipt Date: 20051230
  Transmission Date: 20060701
  Serious: Yes (Life-Threatening, Hospitalization)
  Sender: FDA-Public Use
  Company Number: CH-MERCK-0512CHE00042

PATIENT
  Age: 64 Year
  Sex: Male
  Weight: 110 kg

DRUGS (10)
  1. COZAAR [Suspect]
     Indication: SECONDARY HYPERTENSION
     Route: 048
     Dates: start: 20051031, end: 20051101
  2. LISINOPRIL [Suspect]
     Indication: SECONDARY HYPERTENSION
     Route: 048
     Dates: start: 20051022, end: 20051022
  3. ENALAPRIL MALEATE [Suspect]
     Indication: SECONDARY HYPERTENSION
     Route: 048
     Dates: start: 20051023, end: 20051027
  4. ENALAPRIL MALEATE [Suspect]
     Route: 048
     Dates: start: 20051028, end: 20051028
  5. LOPIRIN [Suspect]
     Indication: SECONDARY HYPERTENSION
     Route: 048
     Dates: start: 20051029, end: 20051030
  6. ASPIRIN [Concomitant]
     Route: 048
     Dates: end: 20051101
  7. SORTIS [Concomitant]
     Route: 048
     Dates: start: 20051022, end: 20051109
  8. NORVASC [Concomitant]
     Route: 048
     Dates: start: 20051030, end: 20051109
  9. NEXIUM [Concomitant]
     Route: 048
     Dates: start: 20051031
  10. ATROVENT [Concomitant]
     Indication: CHRONIC RESPIRATORY FAILURE
     Route: 065

REACTIONS (2)
  - CARDIOPULMONARY FAILURE [None]
  - LARYNGEAL OEDEMA [None]
